FAERS Safety Report 5546315-5 (Version None)
Quarter: 2007Q4

REPORT INFORMATION
  Report Type: 
  Country: None (occurrence: None)
  Receive Date: 20071211
  Receipt Date: 20071205
  Transmission Date: 20080405
  Serious: Yes (Hospitalization, Other)
  Sender: FDA-Public Use
  Company Number: BR-BRISTOL-MYERS SQUIBB COMPANY-13606348

PATIENT
  Age: 63 Year
  Sex: Male

DRUGS (3)
  1. ENTECAVIR [Suspect]
     Indication: HEPATITIS B
     Route: 048
     Dates: start: 20040524
  2. LAMIVUDINE [Concomitant]
     Dosage: DISCONTINUED ON 30-DEC-2003 AND RESTARTED ON 24-MAY-2004.
     Dates: start: 20021230, end: 20040916
  3. GLIBENCLAMIDE [Concomitant]
     Dates: start: 20060724, end: 20070301

REACTIONS (3)
  - HEPATIC NEOPLASM MALIGNANT [None]
  - LIVER TRANSPLANT [None]
  - THERAPEUTIC EMBOLISATION [None]
